FAERS Safety Report 7844206 (Version 2)
Quarter: 2013Q3

REPORT INFORMATION
  Report Type: Spontaneous
  Country: US (occurrence: US)
  Receive Date: 20110307
  Receipt Date: 20130709
  Transmission Date: 20140515
  Serious: Yes (Other)
  Sender: FDA-Public Use
  Company Number: US-JNJFOC-20110301577

PATIENT
  Sex: Male

DRUGS (2)
  1. REOPRO [Suspect]
     Indication: PRODUCT USED FOR UNKNOWN INDICATION
     Route: 042
  2. EFFIENT [Concomitant]

REACTIONS (1)
  - Arterial restenosis [Unknown]
